FAERS Safety Report 6823818-4 (Version None)
Quarter: 2010Q3

REPORT INFORMATION
  Report Type: 
  Country: None (occurrence: None)
  Receive Date: 20100708
  Receipt Date: 20060918
  Transmission Date: 20110219
  Serious: No
  Sender: FDA-Public Use
  Company Number: US-PFIZER INC-2006114114

PATIENT
  Sex: Male
  Weight: 97.52 kg

DRUGS (4)
  1. CHANTIX [Suspect]
     Indication: SMOKING CESSATION THERAPY
     Dates: start: 20060915
  2. LORTAB [Concomitant]
     Indication: BACK DISORDER
  3. ACETYLSALICYLIC ACID [Concomitant]
     Indication: PROPHYLAXIS
  4. ACIPHEX [Concomitant]
     Indication: DYSPEPSIA

REACTIONS (1)
  - ABNORMAL BEHAVIOUR [None]
